FAERS Safety Report 5843514-X (Version None)
Quarter: 2008Q3

REPORT INFORMATION
  Report Type: 
  Country: None (occurrence: None)
  Receive Date: 20080812
  Receipt Date: 20080812
  Transmission Date: 20090109
  Serious: Yes (Hospitalization)
  Sender: FDA-Public Use
  Company Number: None

PATIENT
  Sex: Female
  Weight: 65 kg

DRUGS (5)
  1. CISPLATIN [Suspect]
     Dosage: 82 MG
  2. DOXORUBICIN HYDROCHLORIDE [Suspect]
     Dosage: 74 MG
  3. TAXOL [Suspect]
     Dosage: 264 MG
  4. NEULASTA [Suspect]
     Dosage: 6 MG
  5. COUMADIN [Concomitant]

REACTIONS (9)
  - BLINDNESS TRANSIENT [None]
  - BLINDNESS UNILATERAL [None]
  - DIARRHOEA [None]
  - DRUG TOXICITY [None]
  - EYE HAEMORRHAGE [None]
  - NEUTROPHIL COUNT ABNORMAL [None]
  - PYREXIA [None]
  - VISION BLURRED [None]
  - WHITE BLOOD CELL COUNT ABNORMAL [None]
